FAERS Safety Report 20628419 (Version 1)
Quarter: 2022Q1

REPORT INFORMATION
  Report Type: Report from Study
  Country: GB (occurrence: GB)
  Receive Date: 20220323
  Receipt Date: 20220323
  Transmission Date: 20220423
  Serious: Yes (Hospitalization)
  Sender: FDA-Public Use
  Company Number: GB-ROCHE-2520843

PATIENT
  Age: 28 Year
  Sex: Female

DRUGS (38)
  1. TRASTUZUMAB [Suspect]
     Active Substance: TRASTUZUMAB
     Indication: HER2 positive breast cancer
     Dosage: 588 MILLIGRAM, Q3W
     Route: 041
     Dates: start: 20161216, end: 20161216
  2. TRASTUZUMAB [Suspect]
     Active Substance: TRASTUZUMAB
     Dosage: 441 MILLIGRAM, Q3W
     Route: 041
     Dates: start: 20170106, end: 20170106
  3. TRASTUZUMAB [Suspect]
     Active Substance: TRASTUZUMAB
     Dosage: 420 MILLIGRAM, Q3W
     Route: 041
     Dates: start: 20170127, end: 20190702
  4. TRASTUZUMAB [Suspect]
     Active Substance: TRASTUZUMAB
     Dosage: 441 MILLIGRAM, Q3W
     Route: 041
     Dates: start: 20190723
  5. DOCETAXEL [Suspect]
     Active Substance: DOCETAXEL
     Indication: HER2 positive breast cancer
     Dosage: 130 MILLIGRAM, Q3W
     Route: 042
     Dates: start: 20161215, end: 20170331
  6. PERTUZUMAB [Suspect]
     Active Substance: PERTUZUMAB
     Indication: HER2 positive breast cancer
     Dosage: 840 MILLIGRAM, Q3W
     Route: 042
     Dates: start: 20161216, end: 20161216
  7. PERTUZUMAB [Suspect]
     Active Substance: PERTUZUMAB
     Dosage: 420 MILLIGRAM, Q3W
     Route: 042
     Dates: start: 20170106
  8. TAPENTADOL [Concomitant]
     Active Substance: TAPENTADOL
     Indication: Pain
     Dosage: 250 MILLIGRAM
     Route: 048
     Dates: start: 2019
  9. TAPENTADOL [Concomitant]
     Active Substance: TAPENTADOL
     Dosage: 150 MILLIGRAM
     Route: 048
     Dates: start: 20191120
  10. TAPENTADOL [Concomitant]
     Active Substance: TAPENTADOL
     Dosage: 100 MILLIGRAM
     Route: 048
     Dates: start: 202007
  11. TAPENTADOL [Concomitant]
     Active Substance: TAPENTADOL
     Dosage: 50 MILLIGRAM
     Route: 048
     Dates: start: 202007
  12. TAPENTADOL [Concomitant]
     Active Substance: TAPENTADOL
     Dosage: 100 MILLIGRAM
     Route: 048
     Dates: start: 20190812
  13. TAPENTADOL [Concomitant]
     Active Substance: TAPENTADOL
     Dosage: 50 MILLIGRAM
     Route: 048
     Dates: start: 20190708, end: 20191120
  14. AMITRIPTYLINE [Concomitant]
     Active Substance: AMITRIPTYLINE
     Indication: Pain
     Dosage: 20 MILLIGRAM
     Route: 048
     Dates: start: 20150316
  15. AMITRIPTYLINE [Concomitant]
     Active Substance: AMITRIPTYLINE
     Dosage: 25 MILLIGRAM
     Route: 048
     Dates: start: 202009
  16. ANASTROZOLE [Concomitant]
     Active Substance: ANASTROZOLE
     Dosage: 1 MILLIGRAM, QD
     Route: 048
     Dates: start: 20161028
  17. BISOPROLOL [Concomitant]
     Active Substance: BISOPROLOL
     Indication: Hypertension
     Dosage: 1.25 MILLIGRAM
     Route: 048
     Dates: start: 20180713
  18. CANDESARTAN [Concomitant]
     Active Substance: CANDESARTAN
     Indication: Hypertension
     Dosage: 2 MILLIGRAM, QD
     Route: 048
     Dates: start: 20180713
  19. CHLORPHENIRAMINE MALEATE [Concomitant]
     Active Substance: CHLORPHENIRAMINE MALEATE
     Dosage: 10 MILLIGRAM
     Route: 042
     Dates: start: 20170127, end: 20170718
  20. CIPROFLOXACIN [Concomitant]
     Active Substance: CIPROFLOXACIN
     Indication: Pyrexia
     Dosage: 500 MILLIGRAM, BID
     Route: 048
     Dates: start: 20191025, end: 20191101
  21. DEXAMETHASONE [Concomitant]
     Active Substance: DEXAMETHASONE
     Dosage: 20 MILLIGRAM
     Route: 042
     Dates: start: 20171031, end: 20180607
  22. DEXAMETHASONE [Concomitant]
     Active Substance: DEXAMETHASONE
     Dosage: 20 MILLIGRAM
     Route: 042
     Dates: start: 20170106, end: 20170808
  23. DEXAMETHASONE [Concomitant]
     Active Substance: DEXAMETHASONE
     Dosage: 20 MILLIGRAM
     Route: 042
     Dates: start: 20190111
  24. GOSERELIN [Concomitant]
     Active Substance: GOSERELIN
     Dosage: 3.6 MILLIGRAM, ONCE IN A MONTH
     Route: 058
     Dates: start: 201507
  25. LEVOMEPROMAZINE [Concomitant]
     Active Substance: LEVOMEPROMAZINE
     Indication: Insomnia
     Dosage: 25 MILLIGRAM
     Route: 048
     Dates: start: 20200120
  26. METOCLOPRAMIDE [Concomitant]
     Active Substance: METOCLOPRAMIDE
     Dosage: 10 MILLIGRAM
     Route: 042
     Dates: start: 20161215, end: 20170217
  27. MORPHINE SULFATE [Concomitant]
     Active Substance: MORPHINE SULFATE
     Indication: Pain
     Dosage: 10 MILLIGRAM, Q4D
     Route: 048
     Dates: start: 20161011, end: 20191120
  28. OMEPRAZOLE [Concomitant]
     Active Substance: OMEPRAZOLE
     Indication: Gastrooesophageal reflux disease
     Dosage: 20 MILLIGRAM, QD
     Route: 048
     Dates: start: 20161220
  29. ACETAMINOPHEN [Concomitant]
     Active Substance: ACETAMINOPHEN
     Dosage: 500 MILLIGRAM
     Route: 048
     Dates: start: 20210705
  30. ACETAMINOPHEN [Concomitant]
     Active Substance: ACETAMINOPHEN
     Dosage: 1 MILLIGRAM AS NECESSARY
     Route: 048
     Dates: start: 20200319
  31. PREGABALIN [Concomitant]
     Active Substance: PREGABALIN
     Indication: Pain
     Dosage: 50 MILLIGRAM, BID
     Route: 048
     Dates: start: 20200120, end: 202007
  32. PREGABALIN [Concomitant]
     Active Substance: PREGABALIN
     Dosage: 25 MILLIGRAM, BID
     Route: 048
     Dates: start: 20180313
  33. PREGABALIN [Concomitant]
     Active Substance: PREGABALIN
     Dosage: 75 MILLIGRAM, BID
     Route: 048
     Dates: start: 202007
  34. RANITIDINE [Concomitant]
     Active Substance: RANITIDINE
     Dosage: 50 MILLIGRAM
     Route: 042
     Dates: start: 20170106, end: 20170718
  35. POTASSIUM BICARBONATE\POTASSIUM CHLORIDE [Concomitant]
     Active Substance: POTASSIUM BICARBONATE\POTASSIUM CHLORIDE
     Indication: Blood potassium decreased
     Dosage: 2 DOSAGE FORM THRICE A DAY
     Route: 048
     Dates: start: 20191025, end: 20191027
  36. VAGIFEM [Concomitant]
     Active Substance: ESTRADIOL
     Indication: Menopausal symptoms
     Dosage: 10 MICROGRAM, BIWEEKLY
     Route: 067
     Dates: start: 20210827
  37. ZOLEDRONIC ACID [Concomitant]
     Active Substance: ZOLEDRONIC ACID
     Dosage: 4 MILLIGRAM, ONCE A MONTH
     Route: 042
     Dates: start: 20161215
  38. ZOPICLONE [Concomitant]
     Active Substance: ZOPICLONE
     Indication: Insomnia
     Dosage: 7.5 MILLIGRAM
     Route: 048
     Dates: start: 20140716

REACTIONS (2)
  - Pyrexia [Recovered/Resolved]
  - Malaise [Unknown]

NARRATIVE: CASE EVENT DATE: 20191025
